FAERS Safety Report 6669513-6 (Version None)
Quarter: 2010Q2

REPORT INFORMATION
  Report Type: 
  Country: None (occurrence: None)
  Receive Date: 20100406
  Receipt Date: 20100401
  Transmission Date: 20101027
  Serious: Yes (Death)
  Sender: FDA-Public Use
  Company Number: PHHY2010GB20518

PATIENT
  Sex: Male

DRUGS (1)
  1. CLOZARIL [Suspect]

REACTIONS (4)
  - CONSTIPATION [None]
  - INTESTINAL ISCHAEMIA [None]
  - PANCREATIC NECROSIS [None]
  - WEIGHT INCREASED [None]
